FAERS Safety Report 6819388-7 (Version None)
Quarter: 2010Q3

REPORT INFORMATION
  Report Type: 
  Country: None (occurrence: None)
  Receive Date: 20100707
  Receipt Date: 20100628
  Transmission Date: 20110219
  Serious: Yes (Other)
  Sender: FDA-Public Use
  Company Number: ES-PFIZER INC-2010080028

PATIENT
  Age: 49 Year
  Sex: Female

DRUGS (4)
  1. CHAMPIX [Suspect]
     Indication: TOBACCO ABUSE
     Dosage: 0.5 MG, 1X/DAY
     Route: 048
     Dates: start: 20100201, end: 20100203
  2. CHAMPIX [Suspect]
     Dosage: 0.5 MG, 2X/DAY
     Route: 048
     Dates: start: 20100201, end: 20100207
  3. CHAMPIX [Suspect]
     Dosage: 1 MG, 2X/DAY
     Route: 048
     Dates: start: 20100201, end: 20100301
  4. ALPRAZOLAM [Concomitant]
     Dosage: 0.5 MG/DAY
     Route: 048
     Dates: start: 20090101

REACTIONS (4)
  - INSOMNIA [None]
  - MALAISE [None]
  - RETCHING [None]
  - SENSATION OF HEAVINESS [None]
